FAERS Safety Report 4643088-5 (Version None)
Quarter: 2005Q2

REPORT INFORMATION
  Report Type: 
  Country: None (occurrence: None)
  Receive Date: 20050422
  Receipt Date: 20050419
  Transmission Date: 20051028
  Serious: Yes (Hospitalization, Other)
  Sender: FDA-Public Use
  Company Number: US-MERCK-0504USA03461

PATIENT
  Age: 65 Year
  Sex: Female

DRUGS (1)
  1. FOSAMAX [Suspect]
     Route: 048
     Dates: start: 19990401

REACTIONS (6)
  - BODY HEIGHT DECREASED [None]
  - FRACTURE [None]
  - FRACTURE NONUNION [None]
  - HIP FRACTURE [None]
  - IMPAIRED HEALING [None]
  - THERAPY NON-RESPONDER [None]
